FAERS Safety Report 18302700 (Version 6)
Quarter: 2024Q2

REPORT INFORMATION
  Report Type: Other
  Country: LT (occurrence: None)
  Receive Date: 20200923
  Receipt Date: 20240403
  Transmission Date: 20240715
  Serious: Yes (Hospitalization)
  Sender: FDA-Public Use
  Company Number: LT-ROCHE-2682923

PATIENT
  Age: 52 Year
  Sex: Male
  Weight: 83 kg

DRUGS (7)
  1. ATEZOLIZUMAB [Suspect]
     Active Substance: ATEZOLIZUMAB
     Indication: Lung squamous cell carcinoma metastatic
     Dosage: ON 25/AUG/2020, HE RECEIVED THE MOST RECENT DOSE OF ATEZOLIZUMAB PRIOR TO AE/SAE (ADVERSE EVENT/SERI
     Route: 041
     Dates: start: 20200825
  2. NEBIVOLOL [Concomitant]
     Active Substance: NEBIVOLOL
     Indication: Essential hypertension
  3. FENTANYL [Concomitant]
     Active Substance: FENTANYL\FENTANYL CITRATE
     Indication: Bone pain
     Dates: start: 20200819
  4. TRAMADOL [Concomitant]
     Active Substance: TRAMADOL\TRAMADOL HYDROCHLORIDE
     Indication: Bone pain
     Dates: start: 20200819
  5. DENINTUZUMAB MAFODOTIN [Concomitant]
     Dates: start: 20200826
  6. DENOSUMAB [Concomitant]
     Active Substance: DENOSUMAB
     Indication: Metastases to bone
     Dates: start: 20200826, end: 20200826
  7. MORPHINE [Concomitant]
     Active Substance: MORPHINE
     Indication: Bone pain
     Dates: start: 20200921, end: 20200924

REACTIONS (1)
  - Hepatitis [Not Recovered/Not Resolved]

NARRATIVE: CASE EVENT DATE: 20200915
